FAERS Safety Report 8271251-3 (Version None)
Quarter: 2012Q2

REPORT INFORMATION
  Report Type: 
  Country: None (occurrence: None)
  Receive Date: 20120410
  Receipt Date: 20120402
  Transmission Date: 20120825
  Serious: Yes (Death, Other)
  Sender: FDA-Public Use
  Company Number: FR-PFIZER INC-2012058324

PATIENT
  Age: 95 Year
  Sex: Female

DRUGS (15)
  1. ARGATROBAN [Suspect]
     Dosage: 1.5 MG, 1 HR.
     Route: 042
     Dates: start: 20120205, end: 20120205
  2. RAMIPRIL [Concomitant]
  3. COUMADIN [Concomitant]
     Dosage: UNK
  4. CALCIPARINE [Concomitant]
     Indication: RENAL FAILURE
     Dosage: UNK
     Dates: start: 20120119, end: 20120131
  5. BISOPROLOL FUMARATE [Concomitant]
  6. LOVENOX [Concomitant]
     Indication: PROPHYLAXIS
     Dosage: UNK
     Dates: end: 20120119
  7. ARGATROBAN [Suspect]
     Dosage: OVERDOSE (DOSAGE UNSPECIFIED)
     Route: 042
     Dates: start: 20120212, end: 20120212
  8. GENTAMICIN [Concomitant]
     Indication: PNEUMONIA
     Dosage: UNK
     Dates: start: 20120124, end: 20120124
  9. ARGATROBAN [Suspect]
     Dosage: 0.4 MG, 1 HR.
     Route: 042
     Dates: start: 20120212, end: 20120212
  10. CORDARONE [Concomitant]
  11. ROCEPHIN [Concomitant]
     Indication: PNEUMONIA
     Dosage: UNK
     Dates: start: 20120124, end: 20120130
  12. ARGATROBAN [Suspect]
     Dosage: 0.7 MG, 1 HR.
     Route: 042
     Dates: start: 20120206, end: 20120206
  13. LASIX [Concomitant]
     Indication: RENAL FAILURE
  14. PIPERACILLIN AND TAZOBACTAM [Concomitant]
     Indication: PNEUMONIA
     Dosage: UNK
     Dates: start: 20120130
  15. ARGATROBAN [Suspect]
     Indication: HEPARIN-INDUCED THROMBOCYTOPENIA
     Dosage: 0.5 MG, 1 IN 1 HR.
     Route: 042
     Dates: start: 20120201, end: 20120212

REACTIONS (2)
  - OVERDOSE [None]
  - GASTROINTESTINAL HAEMORRHAGE [None]
